FAERS Safety Report 14414165 (Version 1)
Quarter: 2018Q1

REPORT INFORMATION
  Report Type: Spontaneous
  Country: US (occurrence: US)
  Receive Date: 20180120
  Receipt Date: 20180120
  Transmission Date: 20180509
  Serious: Yes (Death, Life-Threatening)
  Sender: FDA-Public Use
  Company Number: US-ROCHE-2017858

PATIENT
  Age: 58 Year
  Sex: Female

DRUGS (18)
  1. VASOPRESSIN. [Concomitant]
     Active Substance: VASOPRESSIN
  2. METHYLPREDNISOLONE. [Concomitant]
     Active Substance: METHYLPREDNISOLONE
  3. OXYGEN. [Concomitant]
     Active Substance: OXYGEN
  4. MEROPENEM. [Concomitant]
     Active Substance: MEROPENEM
  5. FLUCONAZOLE. [Concomitant]
     Active Substance: FLUCONAZOLE
  6. VANCOMYCIN [Concomitant]
     Active Substance: VANCOMYCIN
  7. PROCHLORPERAZINE. [Concomitant]
     Active Substance: PROCHLORPERAZINE
  8. PHENYLEPHRINE [Concomitant]
     Active Substance: PHENYLEPHRINE\PHENYLEPHRINE HYDROCHLORIDE
  9. ONDANSETRON [Concomitant]
     Active Substance: ONDANSETRON
  10. SULFAMETHOXAZOLE/TRIMETHOPRIM [Concomitant]
     Active Substance: SULFAMETHOXAZOLE\TRIMETHOPRIM
     Route: 065
  11. MEROPENEM. [Concomitant]
     Active Substance: MEROPENEM
  12. TISAGENLECLEUCEL. [Concomitant]
     Active Substance: TISAGENLECLEUCEL
     Dosage: DOSAGE IS UNCERTAIN.
     Route: 041
  13. VANCOMYCIN [Concomitant]
     Active Substance: VANCOMYCIN
  14. DAPTOMYCIN. [Concomitant]
     Active Substance: DAPTOMYCIN
  15. BENDAMUSTINE [Concomitant]
     Active Substance: BENDAMUSTINE
  16. NOREPINEPHRINE. [Concomitant]
     Active Substance: NOREPINEPHRINE
  17. ACTEMRA [Suspect]
     Active Substance: TOCILIZUMAB
     Indication: CYTOKINE RELEASE SYNDROME
     Dosage: DOSAGE IS UNCERTAIN.
     Route: 042
  18. TPN [Concomitant]
     Active Substance: AMINO ACIDS\DEXTROSE\ELECTROLYTES NOS\SOYBEAN OIL

REACTIONS (5)
  - Diffuse large B-cell lymphoma [Fatal]
  - Lactic acidosis [Fatal]
  - Cardiac arrest [Unknown]
  - Blood lactate dehydrogenase increased [Fatal]
  - Generalised tonic-clonic seizure [Unknown]
